FAERS Safety Report 5508573-2 (Version None)
Quarter: 2007Q4

REPORT INFORMATION
  Report Type: 
  Country: None (occurrence: None)
  Receive Date: 20071031
  Receipt Date: 20070720
  Transmission Date: 20080405
  Serious: No
  Sender: FDA-Public Use
  Company Number: 2007PV033159

PATIENT
  Age: 31 Year
  Sex: Female

DRUGS (7)
  1. SYMLIN [Suspect]
     Dosage: 60 MCG; SC; 3 MCG; SC; 60 MCG; SC; 45 MCG; SC; 30 MCG; SC; 15 MCG; SC
     Route: 058
     Dates: start: 20070601, end: 20070601
  2. SYMLIN [Suspect]
     Dosage: 60 MCG; SC; 3 MCG; SC; 60 MCG; SC; 45 MCG; SC; 30 MCG; SC; 15 MCG; SC
     Route: 058
     Dates: start: 20070601, end: 20070601
  3. SYMLIN [Suspect]
     Dosage: 60 MCG; SC; 3 MCG; SC; 60 MCG; SC; 45 MCG; SC; 30 MCG; SC; 15 MCG; SC
     Route: 058
     Dates: start: 20070601, end: 20070601
  4. SYMLIN [Suspect]
     Dosage: 60 MCG; SC; 3 MCG; SC; 60 MCG; SC; 45 MCG; SC; 30 MCG; SC; 15 MCG; SC
     Route: 058
     Dates: start: 20070601, end: 20070601
  5. SYMLIN [Suspect]
     Dosage: 60 MCG; SC; 3 MCG; SC; 60 MCG; SC; 45 MCG; SC; 30 MCG; SC; 15 MCG; SC
     Route: 058
     Dates: start: 20070701
  6. SYMLIN [Suspect]
     Dosage: 60 MCG; SC; 3 MCG; SC; 60 MCG; SC; 45 MCG; SC; 30 MCG; SC; 15 MCG; SC
     Route: 058
     Dates: start: 20070718
  7. HEMALOG [Concomitant]

REACTIONS (12)
  - BLOOD GLUCOSE DECREASED [None]
  - BLOOD GLUCOSE INCREASED [None]
  - DEHYDRATION [None]
  - DRUG INEFFECTIVE [None]
  - DRY MOUTH [None]
  - FATIGUE [None]
  - HYPERHIDROSIS [None]
  - INFUSION SITE SCAR [None]
  - INFUSION SITE URTICARIA [None]
  - IRRITABILITY [None]
  - MALAISE [None]
  - MICTURITION URGENCY [None]
